FAERS Safety Report 7764807-5 (Version None)
Quarter: 2011Q3

REPORT INFORMATION
  Report Type: 
  Country: None (occurrence: None)
  Receive Date: 20110921
  Receipt Date: 20100910
  Transmission Date: 20111222
  Serious: Yes (Death, Hospitalization, Disabling, Other)
  Sender: FDA-Public Use
  Company Number: IT-CELGENEUS-083-21880-10070154

PATIENT
  Sex: Male

DRUGS (10)
  1. FOLIC ACID [Concomitant]
     Dosage: 7.5 UNKNOWN
     Route: 065
  2. MELPHALAN HYDROCHLORIDE [Suspect]
     Dosage: 200 MILLIGRAM/SQ. METER
     Route: 041
     Dates: start: 20091207
  3. AMOXICILLIN AND CLAVULANATE POTASSIUM [Suspect]
     Indication: PYREXIA
     Dosage: 3 GRAM
     Route: 048
     Dates: start: 20091230, end: 20100104
  4. ACYCLOVIR [Concomitant]
     Dosage: 1200 MILLIGRAM
     Route: 065
  5. ESCITALOPRAM [Concomitant]
     Dosage: 10 MILLIGRAM
     Route: 065
  6. REVLIMID [Suspect]
     Indication: MULTIPLE MYELOMA
     Dosage: 25 MILLIGRAM
     Route: 048
     Dates: start: 20081203, end: 20090324
  7. MELPHALAN HYDROCHLORIDE [Suspect]
     Indication: MULTIPLE MYELOMA
     Dosage: 200 MILLIGRAM/SQ. METER
     Route: 041
     Dates: start: 20090612
  8. AMOXICILLIN AND CLAVULANATE POTASSIUM [Suspect]
     Indication: PHARYNGITIS
  9. CALCIUM CARBONATE [Concomitant]
     Dosage: 1000 MILLIGRAM
     Route: 065
  10. AMISULPRIDE [Concomitant]
     Dosage: 50 MILLIGRAM
     Route: 065

REACTIONS (7)
  - PSEUDOMONAL SEPSIS [None]
  - RESPIRATORY FAILURE [None]
  - LUNG INFECTION PSEUDOMONAL [None]
  - STAPHYLOCOCCAL SEPSIS [None]
  - RASH [None]
  - CACHEXIA [None]
  - CYTOMEGALOVIRUS INFECTION [None]
